FAERS Safety Report 4270656-5 (Version None)
Quarter: 2004Q1

REPORT INFORMATION
  Report Type: 
  Country: None (occurrence: None)
  Receive Date: 20040114
  Receipt Date: 20031007
  Transmission Date: 20041129
  Serious: Yes (Hospitalization)
  Sender: FDA-Public Use
  Company Number: PL-BRISTOL-MYERS SQUIBB COMPANY-12403473

PATIENT
  Age: 70 Year
  Sex: Female

DRUGS (10)
  1. CISPLATIN [Suspect]
     Indication: NON-SMALL CELL LUNG CANCER
     Dosage: DISCONTINUED 18-DEC-03
     Route: 042
     Dates: start: 20030909, end: 20031113
  2. PACLITAXEL [Suspect]
     Indication: NON-SMALL CELL LUNG CANCER
     Dosage: DISCONTINUED FROM STUDY 18-DEC-03
     Route: 042
     Dates: start: 20030909, end: 20031113
  3. ISOSORBIDE MONONITRATE [Concomitant]
     Dates: start: 19950101
  4. PERINDOPRIL [Concomitant]
     Dates: start: 20000101
  5. PROMAZINE HCL [Concomitant]
     Dates: start: 20020101
  6. AMBROXOL [Concomitant]
     Dates: start: 20030831
  7. THEOPHYLLINE [Concomitant]
     Dates: start: 20030831
  8. RANITIDINE [Concomitant]
     Dates: start: 20030831
  9. MORPHINE SULFATE [Concomitant]
     Dates: start: 20030903
  10. KETOPROFEN [Concomitant]
     Indication: MYALGIA
     Dates: start: 20031024

REACTIONS (6)
  - ASTHENIA [None]
  - ATRIAL FIBRILLATION [None]
  - FATIGUE [None]
  - HEART RATE IRREGULAR [None]
  - NEUROTOXICITY [None]
  - PERIPHERAL MOTOR NEUROPATHY [None]
